FAERS Safety Report 8299696-6 (Version None)
Quarter: 2012Q2

REPORT INFORMATION
  Report Type: 
  Country: None (occurrence: None)
  Receive Date: 20120419
  Receipt Date: 20120403
  Transmission Date: 20120825
  Serious: Yes (Other)
  Sender: FDA-Public Use
  Company Number: CA-CELGENEUS-028-21660-12040840

PATIENT

DRUGS (1)
  1. ABRAXANE [Suspect]
     Dosage: 260 MILLIGRAM/SQ. METER
     Route: 041

REACTIONS (8)
  - JOINT STIFFNESS [None]
  - HYPERTENSION [None]
  - NEUROPATHY PERIPHERAL [None]
  - PAIN [None]
  - NAUSEA [None]
  - ASTHENIA [None]
  - FATIGUE [None]
  - ALOPECIA [None]
